APPROVED DRUG PRODUCT: EPIVIR-HBV
Active Ingredient: LAMIVUDINE
Strength: 5MG/ML
Dosage Form/Route: SOLUTION;ORAL
Application: N021004 | Product #001
Applicant: GLAXOSMITHKLINE
Approved: Dec 8, 1998 | RLD: Yes | RS: No | Type: DISCN